FAERS Safety Report 8707877 (Version 2)
Quarter: 2012Q4

REPORT INFORMATION
  Report Type: 
  Country: US (occurrence: US)
  Receive Date: 20120806
  Receipt Date: 20121108
  Transmission Date: 20130627
  Serious: Yes (Other)
  Sender: FDA-Public Use
  Company Number: US-PFIZER INC-2012052340

PATIENT
  Age: 31 Year
  Sex: Male

DRUGS (4)
  1. CHANTIX [Suspect]
     Indication: SMOKING CESSATION THERAPY
     Dosage: 1 mg, UNK
     Dates: start: 200811, end: 20090514
  2. KLONOPIN [Concomitant]
     Indication: ANXIETY
     Dosage: UNK
     Dates: start: 20040823
  3. VICODIN [Concomitant]
     Indication: SHOULDER PAIN
     Dosage: UNK
     Dates: start: 20040827, end: 20111015
  4. ADDERALL [Concomitant]
     Indication: ADHD
     Dosage: UNK
     Dates: start: 20050103

REACTIONS (4)
  - Suicidal ideation [Unknown]
  - Depression [Not Recovered/Not Resolved]
  - Anxiety [Not Recovered/Not Resolved]
  - Insomnia [Not Recovered/Not Resolved]
